FAERS Safety Report 7315425-4 (Version None)
Quarter: 2011Q1

REPORT INFORMATION
  Report Type: 
  Country: None (occurrence: None)
  Receive Date: 20110225
  Receipt Date: 20110218
  Transmission Date: 20110831
  Serious: Yes (Other)
  Sender: FDA-Public Use
  Company Number: B0666756A

PATIENT
  Sex: Female
  Weight: 59 kg

DRUGS (11)
  1. TYKERB [Suspect]
     Indication: BREAST CANCER
     Dosage: 1250MG PER DAY
     Route: 048
     Dates: start: 20100531
  2. MOBIC [Concomitant]
     Route: 048
     Dates: start: 20080529
  3. ASTOMIN [Concomitant]
     Route: 048
     Dates: start: 20080128
  4. GASTER D [Concomitant]
     Indication: PROPHYLAXIS
     Route: 048
     Dates: start: 20080610
  5. XELODA [Concomitant]
     Dosage: 1800MG PER DAY
     Route: 048
     Dates: start: 20100531, end: 20100613
  6. TALION [Concomitant]
     Indication: PRURITUS
     Route: 048
     Dates: start: 20080415
  7. SUNRYTHM [Concomitant]
     Indication: SUPRAVENTRICULAR TACHYCARDIA
     Route: 048
     Dates: start: 20080527
  8. OXYCONTIN [Concomitant]
     Route: 048
     Dates: start: 20080511
  9. TAKEPRON [Concomitant]
     Indication: PROPHYLAXIS
     Route: 048
     Dates: start: 20080429, end: 20090609
  10. DROTEBANOL [Concomitant]
     Indication: COUGH
     Route: 048
     Dates: start: 20080204
  11. METEBANYL [Concomitant]
     Indication: COUGH
     Route: 048
     Dates: start: 20080204

REACTIONS (2)
  - DEHYDRATION [None]
  - DIARRHOEA [None]
